FAERS Safety Report 6974010-4 (Version None)
Quarter: 2010Q3

REPORT INFORMATION
  Report Type: 
  Country: None (occurrence: None)
  Receive Date: 20100909
  Receipt Date: 20100830
  Transmission Date: 20110219
  Serious: Yes (Other)
  Sender: FDA-Public Use
  Company Number: JP-B.I. PHARMACEUTICALS,INC./RIDGEFIELD-2010-DE-04522GD

PATIENT
  Age: 64 Year
  Sex: Female

DRUGS (2)
  1. PRAMIPEXOLE DIHYDROCHLORIDE [Suspect]
     Indication: PARKINSON'S DISEASE
     Dosage: 1.5 MG
  2. L-DOPA [Suspect]
     Indication: PARKINSON'S DISEASE
     Dosage: 150 MG
     Route: 048

REACTIONS (3)
  - APATHY [None]
  - DEPRESSION [None]
  - PATHOLOGICAL GAMBLING [None]
